FAERS Safety Report 4731392-1 (Version None)
Quarter: 2005Q3

REPORT INFORMATION
  Report Type: 
  Country: None (occurrence: None)
  Receive Date: 20050729
  Receipt Date: 20050729
  Transmission Date: 20060218
  Serious: Yes (Hospitalization)
  Sender: FDA-Public Use
  Company Number: 005320

PATIENT
  Sex: Female

DRUGS (1)
  1. JUNEL FE 1/20/28 DAY (NORETHINDRONE ACETATE, ETHINYLESTRADIOL, FERROUS [Suspect]
     Dates: start: 20050701

REACTIONS (1)
  - REACTION TO PRESERVATIVES [None]
